FAERS Safety Report 14763614 (Version 3)
Quarter: 2018Q3

REPORT INFORMATION
  Report Type: Spontaneous
  Country: US (occurrence: US)
  Receive Date: 20180416
  Receipt Date: 20180919
  Transmission Date: 20181010
  Serious: Yes (Hospitalization, Other)
  Sender: FDA-Public Use
  Company Number: US-JNJFOC-20180414352

PATIENT
  Age: 53 Year
  Sex: Male

DRUGS (1)
  1. INVOKANA [Suspect]
     Active Substance: CANAGLIFLOZIN
     Indication: TYPE 2 DIABETES MELLITUS
     Route: 048
     Dates: start: 20140421, end: 20150731

REACTIONS (7)
  - Toe amputation [Unknown]
  - Diabetic ketoacidosis [Unknown]
  - Debridement [Unknown]
  - Osteomyelitis [Unknown]
  - Cellulitis [Unknown]
  - Finger amputation [Unknown]
  - Amputation [Unknown]

NARRATIVE: CASE EVENT DATE: 20141119
